FAERS Safety Report 7113647-9 (Version None)
Quarter: 2010Q4

REPORT INFORMATION
  Report Type: 
  Country: None (occurrence: None)
  Receive Date: 20101119
  Receipt Date: 20101108
  Transmission Date: 20110411
  Serious: Yes (Other)
  Sender: FDA-Public Use
  Company Number: PK-ROCHE-741694

PATIENT
  Sex: Female

DRUGS (3)
  1. INTERFERON ALFA-2A [Suspect]
     Route: 058
  2. RIBAVIRIN [Suspect]
     Dosage: FREQUENCY: PER DAY.
     Route: 048
  3. INTERFERON ALFA-2B [Suspect]
     Route: 058

REACTIONS (3)
  - ABORTION [None]
  - DRUG EXPOSURE DURING PREGNANCY [None]
  - PREGNANCY [None]
